FAERS Safety Report 9382295 (Version 2)
Quarter: 2013Q3

REPORT INFORMATION
  Report Type: Report from Study
  Country: JP (occurrence: JP)
  Receive Date: 20130703
  Receipt Date: 20130807
  Transmission Date: 20140515
  Serious: Yes (Other)
  Sender: FDA-Public Use
  Company Number: JP-JNJFOC-20130620148

PATIENT
  Age: 64 Year
  Sex: Male
  Weight: 84 kg

DRUGS (13)
  1. STELARA [Suspect]
     Indication: PSORIASIS
     Route: 058
     Dates: start: 20121011
  2. STELARA [Suspect]
     Indication: PSORIASIS
     Route: 058
     Dates: start: 20121108
  3. STELARA [Suspect]
     Indication: PSORIASIS
     Route: 058
     Dates: start: 20130131
  4. STELARA [Suspect]
     Indication: PSORIASIS
     Route: 058
     Dates: start: 20130425, end: 20130425
  5. ANTEBATE [Concomitant]
     Indication: PSORIASIS
     Route: 048
     Dates: start: 20120223
  6. OXAROL [Concomitant]
     Indication: PSORIASIS
     Dates: start: 20120223
  7. ANTEBATE [Concomitant]
     Indication: PSORIASIS
     Route: 061
     Dates: start: 20120223
  8. ALLELOCK [Concomitant]
     Indication: PSORIASIS
     Route: 048
     Dates: start: 20121011, end: 20130524
  9. ISCOTIN [Concomitant]
     Route: 048
     Dates: start: 20121011, end: 20130524
  10. PYDOXAL [Concomitant]
     Route: 048
     Dates: start: 20121011, end: 20130524
  11. NEORAL [Concomitant]
     Indication: PSORIASIS
     Dates: start: 20120308, end: 20121107
  12. NEORAL [Concomitant]
     Indication: PSORIASIS
     Dates: start: 20120223, end: 20120307
  13. NEORAL [Concomitant]
     Indication: PSORIASIS
     Dates: start: 20121108, end: 20121122

REACTIONS (1)
  - Gastroenteritis [Recovered/Resolved]
